FAERS Safety Report 5671724-3 (Version None)
Quarter: 2008Q1

REPORT INFORMATION
  Report Type: 
  Country: None (occurrence: None)
  Receive Date: 20080314
  Receipt Date: 20080304
  Transmission Date: 20080703
  Serious: Yes (Hospitalization)
  Sender: FDA-Public Use
  Company Number: 2007BI021553

PATIENT
  Age: 57 Year
  Sex: Female

DRUGS (1)
  1. TYSABRI [Suspect]
     Indication: MULTIPLE SCLEROSIS
     Dosage: 300 MG;QM;IV
     Route: 042
     Dates: start: 20071026, end: 20071101

REACTIONS (6)
  - ASTHENIA [None]
  - CULTURE URINE POSITIVE [None]
  - DYSPNOEA [None]
  - OEDEMA PERIPHERAL [None]
  - PROTEUS INFECTION [None]
  - URINARY TRACT INFECTION BACTERIAL [None]
